FAERS Safety Report 6093693-7 (Version None)
Quarter: 2009Q1

REPORT INFORMATION
  Report Type: 
  Country: None (occurrence: None)
  Receive Date: 20090223
  Receipt Date: 20090223
  Transmission Date: 20090719
  Serious: Yes (Other)
  Sender: FDA-Public Use
  Company Number: None

PATIENT
  Age: 53 Year
  Sex: Female
  Weight: 81.6475 kg

DRUGS (3)
  1. EFFEXOR XR [Suspect]
     Indication: DEPRESSION
     Dosage: 150MG 1 CAPSULE EVERY DA PO
     Route: 048
     Dates: start: 20090212, end: 20090217
  2. AMBIEN CR [Concomitant]
  3. AMPHETIMINE WITH SALT COMB. [Concomitant]

REACTIONS (10)
  - DIZZINESS [None]
  - DYSSTASIA [None]
  - FEAR [None]
  - HEADACHE [None]
  - HYPOAESTHESIA ORAL [None]
  - IMPAIRED WORK ABILITY [None]
  - IRRITABILITY [None]
  - NAUSEA [None]
  - VERTIGO [None]
  - VIRAL INFECTION [None]
